FAERS Safety Report 11456029 (Version 1)
Quarter: 2015Q3

REPORT INFORMATION
  Report Type: Spontaneous
  Country: HR (occurrence: HR)
  Receive Date: 20150903
  Receipt Date: 20150903
  Transmission Date: 20151125
  Serious: Yes (Hospitalization, Other)
  Sender: FDA-Public Use
  Company Number: PHHY2015HR104634

PATIENT
  Age: 68 Year
  Sex: Female

DRUGS (2)
  1. COPPER [Suspect]
     Active Substance: COPPER
     Indication: COPPER DEFICIENCY
     Dosage: 2 MG, QD
     Route: 065
  2. ALLOPURINOL. [Suspect]
     Active Substance: ALLOPURINOL
     Indication: GOUT
     Dosage: 400 MG, UNK
     Route: 065

REACTIONS (3)
  - Microcytic anaemia [Recovered/Resolved]
  - Peripheral sensory neuropathy [Recovering/Resolving]
  - Copper deficiency [None]
